FAERS Safety Report 6911502-8 (Version None)
Quarter: 2010Q3

REPORT INFORMATION
  Report Type: 
  Country: None (occurrence: None)
  Receive Date: 20100806
  Receipt Date: 20100727
  Transmission Date: 20110219
  Serious: Yes (Hospitalization)
  Sender: FDA-Public Use
  Company Number: US-BAYER-201024112NA

PATIENT
  Age: 29 Year
  Sex: Female
  Weight: 103 kg

DRUGS (6)
  1. MIRENA [Suspect]
     Indication: CONTRACEPTION
     Dosage: FREQUENCY: CONTINUOUS
     Route: 015
     Dates: start: 20091217, end: 20100301
  2. ACIPHEX [Concomitant]
     Indication: UNEVALUABLE EVENT
     Route: 048
  3. ALBUTEROL SULATE [Concomitant]
     Indication: ASTHMA
     Route: 055
  4. PROZAC [Concomitant]
     Indication: DEPRESSION
     Route: 048
     Dates: start: 20100222
  5. VALTREX [Concomitant]
     Indication: HERPES SIMPLEX
     Route: 048
  6. ZYRTEC [Concomitant]
     Indication: ASTHMA
     Route: 048

REACTIONS (2)
  - MENSTRUATION IRREGULAR [None]
  - UTERINE PERFORATION [None]
